FAERS Safety Report 6228280-0 (Version None)
Quarter: 2009Q2

REPORT INFORMATION
  Report Type: 
  Country: None (occurrence: None)
  Receive Date: 20090612
  Receipt Date: 20090602
  Transmission Date: 20091009
  Serious: Yes (Other)
  Sender: FDA-Public Use
  Company Number: PHHY2009GB19460

PATIENT
  Sex: Male

DRUGS (4)
  1. CLOZARIL [Suspect]
     Indication: SCHIZOPHRENIA
     Dosage: UNK
     Route: 048
     Dates: start: 20081219, end: 20090301
  2. CLOZARIL [Suspect]
     Dosage: 400 MG/DAY
     Route: 048
     Dates: start: 20090301, end: 20090412
  3. CITALOPRAM [Concomitant]
     Indication: OBSESSIVE THOUGHTS
     Dosage: 60 MG/DAY
     Route: 048
  4. SULPIRIDE [Concomitant]
     Indication: PSYCHOTIC DISORDER
     Dosage: 200 MG/DAY
     Route: 048

REACTIONS (2)
  - CONCOMITANT DISEASE AGGRAVATED [None]
  - OBSESSIVE THOUGHTS [None]
